FAERS Safety Report 4282094-X (Version None)
Quarter: 2004Q1

REPORT INFORMATION
  Report Type: 
  Country: None (occurrence: None)
  Receive Date: 20040130
  Receipt Date: 20030428
  Transmission Date: 20041129
  Serious: No
  Sender: FDA-Public Use
  Company Number: US-BRISTOL-MYERS SQUIBB COMPANY-12256731

PATIENT
  Age: 64 Year
  Sex: Female
  Weight: 79 kg

DRUGS (3)
  1. TRAZODONE HCL [Suspect]
     Indication: ROAD TRAFFIC ACCIDENT
     Route: 048
  2. IBUPROFEN [Concomitant]
  3. SINGULAIR [Concomitant]

REACTIONS (2)
  - EYE DISORDER [None]
  - HEADACHE [None]
